FAERS Safety Report 10405104 (Version 2)
Quarter: 2014Q3

REPORT INFORMATION
  Report Type: Spontaneous
  Country: US (occurrence: US)
  Receive Date: 20140825
  Receipt Date: 20140904
  Transmission Date: 20150326
  Serious: No
  Sender: FDA-Public Use
  Company Number: US-AMGEN-USASP2014063152

PATIENT
  Age: 51 Year
  Sex: Female

DRUGS (1)
  1. ENBREL [Suspect]
     Active Substance: ETANERCEPT
     Indication: ANKYLOSING SPONDYLITIS
     Dosage: 50 MG, QWK
     Route: 065
     Dates: start: 20140805, end: 20140812

REACTIONS (9)
  - Erythema [Not Recovered/Not Resolved]
  - Localised infection [Recovered/Resolved]
  - Injection site pain [Recovered/Resolved]
  - Feeling hot [Not Recovered/Not Resolved]
  - Dyspnoea [Recovered/Resolved]
  - Nail injury [Recovered/Resolved]
  - Pain in extremity [Not Recovered/Not Resolved]
  - Peripheral swelling [Recovered/Resolved]
  - Body temperature increased [Recovered/Resolved]

NARRATIVE: CASE EVENT DATE: 20140811
